FAERS Safety Report 23172410 (Version 1)
Quarter: 2023Q4

REPORT INFORMATION
  Report Type: Report from Study
  Country: ES (occurrence: ES)
  Receive Date: 20231110
  Receipt Date: 20231110
  Transmission Date: 20240110
  Serious: Yes (Death, Other)
  Sender: FDA-Public Use
  Company Number: ES-JNJFOC-20231108392

PATIENT

DRUGS (2)
  1. DARZALEX [Suspect]
     Active Substance: DARATUMUMAB
     Indication: Plasma cell myeloma
     Route: 065
  2. LEVOFLOXACIN [Concomitant]
     Active Substance: LEVOFLOXACIN
     Indication: Antibiotic prophylaxis
     Route: 065

REACTIONS (6)
  - Septic shock [Fatal]
  - COVID-19 pneumonia [Fatal]
  - Cytomegalovirus infection reactivation [Unknown]
  - Bacterial infection [Unknown]
  - Viral infection [Unknown]
  - Infection parasitic [Unknown]
